FAERS Safety Report 15300575 (Version 1)
Quarter: 2018Q3

REPORT INFORMATION
  Report Type: Spontaneous
  Country: US (occurrence: US)
  Receive Date: 20180808
  Receipt Date: 20180808
  Transmission Date: 20181010
  Serious: No
  Sender: FDA-Public Use
  Company Number: None

PATIENT
  Age: 24 Year
  Sex: Female
  Weight: 58.5 kg

DRUGS (3)
  1. KROGER ALOE VERA PAIN RELIEVING [Suspect]
     Active Substance: LIDOCAINE\MENTHOL
     Indication: SUNBURN
     Dosage: ?          QUANTITY:16 OUNCE(S);?
     Route: 061
     Dates: start: 20180804, end: 20180804
  2. BIRTH CONTROL [Concomitant]
     Active Substance: UNSPECIFIED INGREDIENT
  3. IBUPROFEN. [Concomitant]
     Active Substance: IBUPROFEN

REACTIONS (4)
  - Eye swelling [None]
  - Nausea [None]
  - Headache [None]
  - Swelling face [None]

NARRATIVE: CASE EVENT DATE: 20180805
